FAERS Safety Report 17751858 (Version 1)
Quarter: 2020Q2

REPORT INFORMATION
  Report Type: Spontaneous
  Country: CN (occurrence: CN)
  Receive Date: 20200506
  Receipt Date: 20200506
  Transmission Date: 20200714
  Serious: Yes (Other)
  Sender: FDA-Public Use
  Company Number: CN-BAXTER-2020BAX009586

PATIENT
  Age: 70 Year
  Sex: Female
  Weight: 57.5 kg

DRUGS (12)
  1. 0.9% SODIUM CHLORIDE INJECTION [Suspect]
     Active Substance: SODIUM CHLORIDE
     Indication: MEDICATION DILUTION
     Dosage: FIRST CHEMOTHERAPY, ENDOXAN + NS
     Route: 042
  2. ENDOXAN [Suspect]
     Active Substance: CYCLOPHOSPHAMIDE
     Dosage: DOSE RE-INTRODUCED, ENDOXAN + NS
     Route: 042
  3. PHARMORUBICIN [Suspect]
     Active Substance: EPIRUBICIN
     Dosage: SECOND CHEMOTHERAPY, PHARMORUBICIN 100 MG + NS 100ML
     Route: 041
     Dates: start: 20200302, end: 20200302
  4. ENDOXAN [Suspect]
     Active Substance: CYCLOPHOSPHAMIDE
     Dosage: SECOND CHEMOTHERAPY, ENDOXAN  800 MG + NS 40ML
     Route: 042
     Dates: start: 20200302, end: 20200302
  5. 0.9% SODIUM CHLORIDE INJECTION [Suspect]
     Active Substance: SODIUM CHLORIDE
     Dosage: DOSE RE-INTRODUCED, ENDOXAN + NS
     Route: 042
  6. 0.9% SODIUM CHLORIDE INJECTION [Suspect]
     Active Substance: SODIUM CHLORIDE
     Dosage: FIRST CHEMOTHERAPY, PHARMORUBICIN + NS
     Route: 041
  7. 0.9% SODIUM CHLORIDE INJECTION [Suspect]
     Active Substance: SODIUM CHLORIDE
     Dosage: SECOND CHEMOTHERAPY, PHARMORUBICIN 100 MG + NS 100 ML
     Route: 041
     Dates: start: 20200302, end: 20200302
  8. PHARMORUBICIN [Suspect]
     Active Substance: EPIRUBICIN
     Dosage: DOSE RE-INTRODUCED, EPIRUBICIN HYDROCHLORIDE  + NS
     Route: 041
  9. ENDOXAN [Suspect]
     Active Substance: CYCLOPHOSPHAMIDE
     Indication: BREAST CANCER FEMALE
     Dosage: FIRST CHEMOTHERAPY, ENDOXAN + NS
     Route: 042
  10. 0.9% SODIUM CHLORIDE INJECTION [Suspect]
     Active Substance: SODIUM CHLORIDE
     Dosage: SECOND CHEMOTHERAPY, ENDOXAN  800 MG + NS 40 ML
     Route: 042
     Dates: start: 20200302, end: 20200302
  11. PHARMORUBICIN [Suspect]
     Active Substance: EPIRUBICIN
     Indication: BREAST CANCER FEMALE
     Dosage: FIRST CHEMOTHERAPY, EPIRUBICIN HYDROCHLORIDE  + NS
     Route: 041
  12. 0.9% SODIUM CHLORIDE INJECTION [Suspect]
     Active Substance: SODIUM CHLORIDE
     Dosage: DOSE RE-INTRODUCED, EPIRUBICIN HYDROCHLORIDE  + NS
     Route: 041

REACTIONS (1)
  - Agranulocytosis [Recovered/Resolved]

NARRATIVE: CASE EVENT DATE: 20200313
